FAERS Safety Report 4665806-2 (Version None)
Quarter: 2005Q2

REPORT INFORMATION
  Report Type: 
  Country: None (occurrence: None)
  Receive Date: 20050519
  Receipt Date: 20050421
  Transmission Date: 20051028
  Serious: No
  Sender: FDA-Public Use
  Company Number: US-GLAXOSMITHKLINE-A0555211A

PATIENT
  Age: 37 Year
  Sex: Female

DRUGS (3)
  1. LOTRONEX [Suspect]
     Indication: IRRITABLE BOWEL SYNDROME
     Dosage: 1MG PER DAY
     Route: 048
  2. LORTAB [Concomitant]
  3. BENTYL [Concomitant]

REACTIONS (2)
  - ABDOMINAL PAIN [None]
  - HAEMATOCHEZIA [None]
